FAERS Safety Report 16278018 (Version 2)
Quarter: 2022Q3

REPORT INFORMATION
  Report Type: Spontaneous
  Country: US (occurrence: US)
  Receive Date: 20190506
  Receipt Date: 20220817
  Transmission Date: 20221026
  Serious: Yes (Other)
  Sender: FDA-Public Use
  Company Number: US-PFIZER INC-2017341088

PATIENT
  Age: 13 Year
  Sex: Male

DRUGS (1)
  1. GENOTROPIN [Suspect]
     Active Substance: SOMATROPIN
     Indication: Hypopituitarism
     Dosage: 1.1 MG, DAILY
     Route: 058
     Dates: start: 201707

REACTIONS (3)
  - Joint dislocation [Unknown]
  - Insulin-like growth factor decreased [Unknown]
  - Incorrect dose administered [Unknown]
